FAERS Safety Report 25621412 (Version 1)
Quarter: 2025Q3

REPORT INFORMATION
  Report Type: Spontaneous
  Country: US (occurrence: US)
  Receive Date: 20250730
  Receipt Date: 20250730
  Transmission Date: 20251021
  Serious: No
  Sender: TEVA
  Company Number: US-TEVA-VS-3356602

PATIENT
  Age: 65 Year
  Sex: Male

DRUGS (1)
  1. SORAFENIB [Suspect]
     Active Substance: SORAFENIB
     Indication: Product used for unknown indication
     Route: 065

REACTIONS (4)
  - Dry skin [Recovered/Resolved]
  - Tachycardia [Unknown]
  - Abdominal pain upper [Recovered/Resolved]
  - Dry mouth [Recovered/Resolved]
